FAERS Safety Report 11132571 (Version 1)
Quarter: 2015Q2

REPORT INFORMATION
  Report Type: Spontaneous
  Country: GB (occurrence: GB)
  Receive Date: 20150522
  Receipt Date: 20150522
  Transmission Date: 20150821
  Serious: Yes (Hospitalization, Other)
  Sender: FDA-Public Use
  Company Number: GB-009507513-1505GBR008932

PATIENT
  Sex: Female

DRUGS (3)
  1. DEXAMETHASONE. [Suspect]
     Active Substance: DEXAMETHASONE
     Indication: UVEITIS
     Dosage: 12 DF (1 DOSAGE FORMS, 1 IN 2 HR)
     Route: 047
     Dates: end: 201311
  2. AUTOLOGOUS BLOOD SERUM EYE DROPS [Concomitant]
     Indication: UVEITIS
     Dosage: UNK, Q2H
     Route: 047
     Dates: start: 2013
  3. DEXAMETHASONE. [Suspect]
     Active Substance: DEXAMETHASONE
     Dosage: 24 DOSAGE FORMS (1 DOSAGE FORMS, 1 IN 1 HOUR)
     Route: 047
     Dates: end: 201311

REACTIONS (10)
  - Ocular discomfort [Unknown]
  - Blood sodium decreased [Unknown]
  - Heart rate increased [Unknown]
  - Blood pressure decreased [Unknown]
  - Keratopathy [Unknown]
  - Eye discharge [Unknown]
  - Gastrointestinal disorder [Unknown]
  - Blood chloride decreased [Unknown]
  - Eye pain [Unknown]
  - Dry eye [Unknown]
